FAERS Safety Report 24880704 (Version 2)
Quarter: 2025Q1

REPORT INFORMATION
  Report Type: Spontaneous
  Country: PL (occurrence: PL)
  Receive Date: 20250123
  Receipt Date: 20250127
  Transmission Date: 20250409
  Serious: Yes (Hospitalization)
  Sender: ORGANON
  Company Number: None

PATIENT
  Age: 40 Year
  Sex: Female

DRUGS (4)
  1. NUVARING [Suspect]
     Active Substance: ETHINYL ESTRADIOL\ETONOGESTREL
     Indication: Contraception
     Route: 067
  2. PIRACETAM [Concomitant]
     Active Substance: PIRACETAM
     Route: 048
  3. NEUROVIT [CYANOCOBALAMIN;IBUPROFEN;PYRIDOXINE HYDROCHLORIDE;THIAMINE H [Concomitant]
     Route: 048
  4. PREGABALIN [Concomitant]
     Active Substance: PREGABALIN
     Route: 048

REACTIONS (4)
  - Paraesthesia [Unknown]
  - Muscular weakness [Unknown]
  - Pain in extremity [Unknown]
  - Muscle contractions involuntary [Unknown]

NARRATIVE: CASE EVENT DATE: 20210601
